FAERS Safety Report 19423312 (Version 7)
Quarter: 2021Q4

REPORT INFORMATION
  Report Type: Report from Study
  Country: AR (occurrence: AR)
  Receive Date: 20210616
  Receipt Date: 20211209
  Transmission Date: 20220303
  Serious: Yes (Other)
  Sender: FDA-Public Use
  Company Number: NVSC2021AR129575

PATIENT
  Age: 82 Year
  Sex: Female

DRUGS (1)
  1. BROLUCIZUMAB [Suspect]
     Active Substance: BROLUCIZUMAB
     Indication: Age-related macular degeneration
     Dosage: 0.6 MG (EVERY 12 WEEKS)
     Route: 047
     Dates: start: 20210304

REACTIONS (5)
  - Choroidal effusion [Unknown]
  - Retinal haemorrhage [Recovering/Resolving]
  - Visual impairment [Not Recovered/Not Resolved]
  - Overweight [Unknown]
  - Drug ineffective [Unknown]

NARRATIVE: CASE EVENT DATE: 20210601
